FAERS Safety Report 8330068 (Version 5)
Quarter: 2012Q4

REPORT INFORMATION
  Report Type: Report from Study
  Country: IT (occurrence: IT)
  Receive Date: 20120111
  Receipt Date: 20120828
  Transmission Date: 20130627
  Serious: Yes (Death, Hospitalization, Disabling)
  Sender: FDA-Public Use
  Company Number: IT-CELGENEUS-083-AB007-11122860

PATIENT
  Age: 75 Year
  Sex: Female
  Weight: 50 kg

DRUGS (10)
  1. ABI-007 [Suspect]
     Indication: PANCREATIC ADENOCARCINOMA METASTATIC
     Dosage: 125 milligram/sq. meter
     Route: 041
     Dates: start: 20111212, end: 20120103
  2. GEMCITABINE [Suspect]
     Indication: PANCREATIC ADENOCARCINOMA METASTATIC
     Dosage: 1000 milligram/sq. meter
     Route: 041
     Dates: start: 20111212, end: 20120103
  3. DELORAZEPAM [Concomitant]
     Indication: DRUG USE FOR UNKNOWN INDICATION
     Dosage: .38 Milligram
     Route: 048
     Dates: start: 20111116
  4. PAROXETINA [Concomitant]
     Indication: DRUG USE FOR UNKNOWN INDICATION
     Dosage: 20 Milligram
     Route: 048
     Dates: start: 20111116
  5. METEDRINA [Concomitant]
     Indication: DRUG USE FOR UNKNOWN INDICATION
     Dosage: 3000 Milligram
     Route: 048
     Dates: start: 20111116
  6. CALCIUM CARBONATE [Concomitant]
     Indication: DRUG USE FOR UNKNOWN INDICATION
     Route: 048
     Dates: start: 20111116
  7. METOPROLOLO [Concomitant]
     Indication: DRUG USE FOR UNKNOWN INDICATION
     Dosage: 50 Milligram
     Route: 048
     Dates: start: 20111116
  8. REPAGLINIDE [Concomitant]
     Indication: DRUG USE FOR UNKNOWN INDICATION
     Dosage: 1 Milligram
     Route: 048
     Dates: start: 20111116
  9. INSULIN [Concomitant]
     Indication: DRUG USE FOR UNKNOWN INDICATION
     Dosage: 6 IU (International Unit)
     Route: 058
     Dates: start: 20111116
  10. ENOXAPARIN SODIUM [Concomitant]
     Indication: DRUG USE FOR UNKNOWN INDICATION
     Dosage: 4000 IU (International Unit)
     Route: 058
     Dates: start: 20111116

REACTIONS (4)
  - General physical health deterioration [Fatal]
  - Confusional state [Not Recovered/Not Resolved]
  - Visual acuity reduced [Not Recovered/Not Resolved]
  - Vomiting [Recovered/Resolved]
